FAERS Safety Report 6918767-7 (Version None)
Quarter: 2010Q3

REPORT INFORMATION
  Report Type: 
  Country: None (occurrence: None)
  Receive Date: 20100811
  Receipt Date: 20100805
  Transmission Date: 20110219
  Serious: Yes (Other)
  Sender: FDA-Public Use
  Company Number: US-RB-012560-10

PATIENT
  Age: 53 Year
  Sex: Female

DRUGS (1)
  1. SUBOXONE [Suspect]
     Indication: PRODUCT USED FOR UNKNOWN INDICATION
     Dosage: UNKNOWN DOSING DETAILS
     Route: 065

REACTIONS (6)
  - DRUG DEPENDENCE [None]
  - HALLUCINATION [None]
  - HEADACHE [None]
  - PRESYNCOPE [None]
  - PSYCHOMOTOR HYPERACTIVITY [None]
  - WHEEZING [None]
